FAERS Safety Report 5085636-X (Version None)
Quarter: 2006Q3

REPORT INFORMATION
  Report Type: 
  Country: None (occurrence: None)
  Receive Date: 20060817
  Receipt Date: 20060808
  Transmission Date: 20061208
  Serious: Yes (Other)
  Sender: FDA-Public Use
  Company Number: 2006097406

PATIENT
  Age: 75 Year
  Sex: Female

DRUGS (2)
  1. ZYRTEC [Suspect]
     Indication: MULTIPLE ALLERGIES
     Dosage: 10 MG (10 MG, 1 IN 1 D)
  2. ACETIC ACID [Suspect]
     Indication: DRUG USE FOR UNKNOWN INDICATION
     Dates: start: 20060801

REACTIONS (7)
  - BODY HEIGHT DECREASED [None]
  - BONE PAIN [None]
  - COELIAC DISEASE [None]
  - COLITIS [None]
  - FOOD ALLERGY [None]
  - WEIGHT DECREASED [None]
  - WEIGHT INCREASED [None]
